FAERS Safety Report 6818715-4 (Version None)
Quarter: 2010Q2

REPORT INFORMATION
  Report Type: 
  Country: None (occurrence: None)
  Receive Date: 20100630
  Receipt Date: 20100618
  Transmission Date: 20101027
  Serious: Yes (Hospitalization)
  Sender: FDA-Public Use
  Company Number: 2010MA000084

PATIENT
  Age: 56 Year
  Sex: Female

DRUGS (3)
  1. INDAPAMIDE [Suspect]
     Dosage: 1.5 MG; QD;
     Dates: start: 20040101, end: 20040101
  2. COZAAR (CON.) [Concomitant]
  3. METFORMIN (CON.) [Concomitant]

REACTIONS (9)
  - ACCIDENT [None]
  - BLOOD CALCIUM DECREASED [None]
  - BLOOD CHOLESTEROL INCREASED [None]
  - BLOOD PRESSURE INCREASED [None]
  - BLOOD TRIGLYCERIDES INCREASED [None]
  - PHARYNGEAL MASS [None]
  - THYROID DISORDER [None]
  - VASCULAR RUPTURE [None]
  - VISUAL IMPAIRMENT [None]
